FAERS Safety Report 19204484 (Version 1)
Quarter: 2021Q2

REPORT INFORMATION
  Report Type: Other
  Country: GB (occurrence: GB)
  Receive Date: 20210503
  Receipt Date: 20210503
  Transmission Date: 20210717
  Serious: Yes (Other)
  Sender: FDA-Public Use
  Company Number: GB-ROCHE-2821052

PATIENT
  Age: 53 Year
  Sex: Male
  Weight: 69 kg

DRUGS (11)
  1. GABAPENTIN. [Concomitant]
     Active Substance: GABAPENTIN
  2. AMITRIPTYLINE [Concomitant]
     Active Substance: AMITRIPTYLINE
  3. OCRELIZUMAB. [Suspect]
     Active Substance: OCRELIZUMAB
     Indication: PRIMARY PROGRESSIVE MULTIPLE SCLEROSIS
     Dosage: 300 MG/250 ML
     Route: 042
     Dates: start: 20191106, end: 20191106
  4. VIAGRA [Concomitant]
     Active Substance: SILDENAFIL CITRATE
  5. AMANTADINE. [Concomitant]
     Active Substance: AMANTADINE HYDROCHLORIDE
  6. METHYLPREDNISOLONE. [Concomitant]
     Active Substance: METHYLPREDNISOLONE
     Dosage: NEXT DOSE ON 20/NOV/2019
     Route: 042
     Dates: start: 20191106, end: 20191106
  7. PREDNISOLONE. [Concomitant]
     Active Substance: PREDNISOLONE
     Route: 048
     Dates: start: 202004
  8. PARACETAMOL [Concomitant]
     Active Substance: ACETAMINOPHEN
     Dosage: NEXT DOSE ON 20/NOV/2019
     Route: 048
     Dates: start: 20191106, end: 20191106
  9. OCRELIZUMAB. [Suspect]
     Active Substance: OCRELIZUMAB
     Dosage: 300 MG/250 ML
     Route: 042
     Dates: start: 20191120, end: 20191120
  10. VITAMIN D3 [Concomitant]
     Active Substance: CHOLECALCIFEROL
  11. CHLORPHENAMINE [Concomitant]
     Active Substance: CHLORPHENIRAMINE MALEATE
     Dosage: NEXT DOSE ON 20/NOV/2019
     Route: 042
     Dates: start: 20191106, end: 20191106

REACTIONS (1)
  - Cellulitis [Recovered/Resolved]

NARRATIVE: CASE EVENT DATE: 20210415
